FAERS Safety Report 21824437 (Version 1)
Quarter: 2023Q1

REPORT INFORMATION
  Report Type: Report from Study
  Country: US (occurrence: US)
  Receive Date: 20230105
  Receipt Date: 20230105
  Transmission Date: 20230418
  Serious: No
  Sender: FDA-Public Use
  Company Number: US-ABBVIE-4237228

PATIENT
  Age: 46 Year
  Sex: Female

DRUGS (2)
  1. SKYRIZI [Suspect]
     Active Substance: RISANKIZUMAB-RZAA
     Indication: Psoriasis
     Route: 058
     Dates: start: 20221212
  2. Pfizer/BioNTech [Concomitant]
     Indication: COVID-19 immunisation
     Route: 030

REACTIONS (6)
  - Paranasal sinus discomfort [Not Recovered/Not Resolved]
  - Cough [Not Recovered/Not Resolved]
  - Musculoskeletal stiffness [Not Recovered/Not Resolved]
  - Fatigue [Not Recovered/Not Resolved]
  - Skin disorder [Not Recovered/Not Resolved]
  - Pyrexia [Recovered/Resolved]

NARRATIVE: CASE EVENT DATE: 20221201
